FAERS Safety Report 5093292-X (Version None)
Quarter: 2006Q3

REPORT INFORMATION
  Report Type: 
  Country: None (occurrence: None)
  Receive Date: 20060829
  Receipt Date: 20060829
  Transmission Date: 20061208
  Serious: Yes (Other)
  Sender: FDA-Public Use
  Company Number: None

PATIENT
  Age: 56 Year
  Sex: Male
  Weight: 73.3 kg

DRUGS (18)
  1. ZOCOR [Suspect]
  2. OMEPRAZOLE [Concomitant]
  3. HUMULIN R [Concomitant]
  4. MORPHINE [Concomitant]
  5. INSULIN GLARGINE, HUMAN [Concomitant]
  6. FENTANYL [Concomitant]
  7. LACTULOSE [Concomitant]
  8. ACETAMINOPHEN [Concomitant]
  9. FUROSEMIDE [Concomitant]
  10. DIAZEPAM [Concomitant]
  11. MOMETASONE FUROATE INHL [Concomitant]
  12. PAROXETINE HCL [Concomitant]
  13. MINOXIDIL [Concomitant]
  14. DOCUSATE /SENNOSIDE [Concomitant]
  15. DILTIAZEM HCL [Concomitant]
  16. CLONIDINE [Concomitant]
  17. ASPIRIN [Concomitant]
  18. ALBUTEROL/IPRATROPIUM INHL [Concomitant]

REACTIONS (1)
  - HEPATIC ENZYME ABNORMAL [None]
